FAERS Safety Report 5524460-8 (Version None)
Quarter: 2007Q4

REPORT INFORMATION
  Report Type: 
  Country: None (occurrence: None)
  Receive Date: 20071122
  Receipt Date: 20071112
  Transmission Date: 20080405
  Serious: Yes (Other)
  Sender: FDA-Public Use
  Company Number: PHBS2007JP19114

PATIENT
  Sex: Male

DRUGS (2)
  1. RITALIN [Suspect]
     Indication: DEPRESSION
     Dosage: 30 MG/DAY
  2. RITALIN [Suspect]
     Dosage: 20 MG/DAY

REACTIONS (3)
  - APATHY [None]
  - MOOD ALTERED [None]
  - SUICIDAL IDEATION [None]
